FAERS Safety Report 8251370-8 (Version None)
Quarter: 2012Q2

REPORT INFORMATION
  Report Type: 
  Country: None (occurrence: None)
  Receive Date: 20120402
  Receipt Date: 20120326
  Transmission Date: 20120825
  Serious: Yes (Hospitalization)
  Sender: FDA-Public Use
  Company Number: FR-GLAXOSMITHKLINE-B0792469A

PATIENT
  Age: 57 Year
  Sex: Female

DRUGS (1)
  1. NABUMETONE [Suspect]
     Indication: BONE PAIN
     Dosage: 2G TWICE PER DAY
     Route: 048
     Dates: start: 20120301, end: 20120301

REACTIONS (2)
  - SHOCK HAEMORRHAGIC [None]
  - UPPER GASTROINTESTINAL HAEMORRHAGE [None]
